FAERS Safety Report 25943479 (Version 1)
Quarter: 2025Q4

REPORT INFORMATION
  Report Type: Other
  Country: GB (occurrence: GB)
  Receive Date: 20251021
  Receipt Date: 20251021
  Transmission Date: 20260119
  Serious: Yes (Other)
  Sender: GLENMARK
  Company Number: GB-MHRA-37253837

PATIENT
  Sex: Female

DRUGS (2)
  1. ROSUVASTATIN CALCIUM [Interacting]
     Active Substance: ROSUVASTATIN CALCIUM
     Indication: Product used for unknown indication
     Dosage: UNK
     Route: 065
  2. LISINOPRIL [Interacting]
     Active Substance: LISINOPRIL
     Indication: Product used for unknown indication
     Dosage: UNK
     Route: 065

REACTIONS (12)
  - Muscle atrophy [Recovering/Resolving]
  - Muscle spasms [Recovering/Resolving]
  - Rash erythematous [Recovering/Resolving]
  - Panic attack [Recovering/Resolving]
  - Gait disturbance [Recovering/Resolving]
  - Rhinorrhoea [Recovering/Resolving]
  - Retching [Recovering/Resolving]
  - Drug interaction [Recovering/Resolving]
  - Cough [Recovering/Resolving]
  - Diarrhoea [Recovering/Resolving]
  - Rash pruritic [Recovering/Resolving]
  - Dyspnoea [Recovering/Resolving]
